FAERS Safety Report 10499649 (Version 1)
Quarter: 2014Q4

REPORT INFORMATION
  Report Type: Spontaneous
  Country: US (occurrence: US)
  Receive Date: 20141006
  Receipt Date: 20141006
  Transmission Date: 20150528
  Serious: No
  Sender: FDA-Public Use
  Company Number: US-AMGEN INC.-USASP2014041971

PATIENT
  Age: 55 Year
  Sex: Female

DRUGS (4)
  1. BONIVA [Concomitant]
     Active Substance: IBANDRONATE SODIUM
  2. FOSAMAX [Concomitant]
     Active Substance: ALENDRONATE SODIUM
  3. PROLIA [Suspect]
     Active Substance: DENOSUMAB
     Indication: OSTEOPOROSIS
     Dosage: UNK
     Route: 065
  4. RECLAST [Concomitant]
     Active Substance: ZOLEDRONIC ACID

REACTIONS (3)
  - Arthralgia [Unknown]
  - Injection site pain [Unknown]
  - Memory impairment [Unknown]
